FAERS Safety Report 7401460-4 (Version None)
Quarter: 2011Q2

REPORT INFORMATION
  Report Type: 
  Country: None (occurrence: None)
  Receive Date: 20110407
  Receipt Date: 20110330
  Transmission Date: 20111010
  Serious: Yes (Other)
  Sender: FDA-Public Use
  Company Number: US-MYLANLABS-2011S1004729

PATIENT
  Age: 19 Year
  Sex: Male

DRUGS (2)
  1. CLARAVIS [Suspect]
     Indication: ACNE CYSTIC
     Route: 048
     Dates: start: 20101117
  2. AMNESTEEM [Suspect]
     Indication: ACNE CYSTIC
     Route: 048
     Dates: start: 20101222, end: 20110302

REACTIONS (2)
  - DEPRESSION [None]
  - SUICIDAL IDEATION [None]
